FAERS Safety Report 7559316-2 (Version None)
Quarter: 2011Q2

REPORT INFORMATION
  Report Type: 
  Country: None (occurrence: None)
  Receive Date: 20110613
  Receipt Date: 20110531
  Transmission Date: 20111010
  Serious: Yes (Disabling, Other)
  Sender: FDA-Public Use
  Company Number: 2011MA006794

PATIENT
  Sex: Female

DRUGS (3)
  1. METOCLOPRAMIDE [Suspect]
     Indication: ABDOMINAL DISTENSION
     Dates: start: 20000101, end: 20100101
  2. METOCLOPRAMIDE [Suspect]
     Indication: IMPAIRED GASTRIC EMPTYING
     Dates: start: 20000101, end: 20100101
  3. METOCLOPRAMIDE [Suspect]
     Indication: DYSPEPSIA
     Dates: start: 20000101, end: 20100101

REACTIONS (7)
  - MULTIPLE INJURIES [None]
  - NERVOUS SYSTEM DISORDER [None]
  - PAIN [None]
  - ECONOMIC PROBLEM [None]
  - TARDIVE DYSKINESIA [None]
  - INCORRECT DRUG ADMINISTRATION DURATION [None]
  - EXTRAPYRAMIDAL DISORDER [None]
